FAERS Safety Report 19936417 (Version 1)
Quarter: 2021Q4

REPORT INFORMATION
  Report Type: Spontaneous
  Country: US (occurrence: US)
  Receive Date: 20211008
  Receipt Date: 20211008
  Transmission Date: 20220303
  Serious: No
  Sender: FDA-Public Use
  Company Number: US-SPROUT PHARMACEUTICALS, INC.-2021SP000097

PATIENT
  Sex: Female

DRUGS (1)
  1. ADDYI [Suspect]
     Active Substance: FLIBANSERIN
     Indication: Product used for unknown indication
     Route: 048
     Dates: start: 20210419, end: 20210419

REACTIONS (5)
  - Dizziness [Unknown]
  - Paraesthesia oral [Unknown]
  - Headache [Unknown]
  - Heart rate irregular [Unknown]
  - Illness [Unknown]
